FAERS Safety Report 7968383-3 (Version None)
Quarter: 2011Q4

REPORT INFORMATION
  Report Type: 
  Country: None (occurrence: None)
  Receive Date: 20111209
  Receipt Date: 20111201
  Transmission Date: 20120403
  Serious: Yes (Hospitalization)
  Sender: FDA-Public Use
  Company Number: US-EISAI INC-E7389-01455-CLI-US

PATIENT
  Sex: Male

DRUGS (13)
  1. FOLIC ACID [Concomitant]
     Indication: PREMEDICATION
     Dosage: UNKNOWN
     Route: 048
     Dates: start: 20110629
  2. PRILOSEC [Concomitant]
     Route: 048
     Dates: start: 20110714
  3. CLARITIN [Concomitant]
     Route: 048
     Dates: start: 20110714
  4. EPIRUBICIN HYDROCHLORIDE [Suspect]
     Indication: NON-SMALL CELL LUNG CANCER
     Route: 041
     Dates: start: 20110707
  5. BIOTENE [Concomitant]
     Route: 048
     Dates: start: 20110804
  6. MILK OF MAGNESIA TAB [Concomitant]
     Indication: CONSTIPATION
     Route: 048
     Dates: start: 20110825
  7. VICODIN [Concomitant]
     Indication: METASTATIC PAIN
     Route: 048
     Dates: start: 20110629
  8. VALTREX [Concomitant]
     Route: 048
     Dates: start: 20110804
  9. MEGACE [Concomitant]
     Indication: APPETITE DISORDER
     Route: 048
     Dates: start: 20110804
  10. PEMETREXED [Concomitant]
     Indication: NON-SMALL CELL LUNG CANCER
     Route: 041
     Dates: start: 20110707
  11. NEURONTIN [Concomitant]
     Route: 048
     Dates: start: 20110629
  12. ACETAMINOPHEN [Concomitant]
     Indication: METASTATIC PAIN
     Route: 048
     Dates: start: 20110714
  13. MIRALAX [Concomitant]
     Indication: CONSTIPATION
     Route: 048
     Dates: start: 20110714

REACTIONS (1)
  - SEPSIS SYNDROME [None]
